FAERS Safety Report 24925849 (Version 1)
Quarter: 2025Q1

REPORT INFORMATION
  Report Type: Spontaneous
  Country: LK (occurrence: LK)
  Receive Date: 20250205
  Receipt Date: 20250205
  Transmission Date: 20250408
  Serious: Yes (Hospitalization, Other)
  Sender: Haleon PLC
  Company Number: LK-HALEON-2226344

PATIENT
  Age: 30 Year
  Sex: Female

DRUGS (1)
  1. DICLOFENAC SODIUM [Suspect]
     Active Substance: DICLOFENAC SODIUM
     Indication: Product used for unknown indication
     Route: 048

REACTIONS (12)
  - Necrotising fasciitis [Recovered/Resolved]
  - Maternal exposure during breast feeding [Unknown]
  - Pyrexia [Recovered/Resolved]
  - Chills [Recovered/Resolved]
  - Breast pain [Recovered/Resolved]
  - Breast swelling [Recovered/Resolved]
  - Breast tenderness [Recovered/Resolved]
  - Breast abscess [Recovered/Resolved]
  - Condition aggravated [Recovered/Resolved]
  - Breast discolouration [Recovered/Resolved]
  - Skin disorder [Recovered/Resolved]
  - Secretion discharge [Recovered/Resolved]
